FAERS Safety Report 20206777 (Version 1)
Quarter: 2021Q4

REPORT INFORMATION
  Report Type: Spontaneous
  Country: US (occurrence: US)
  Receive Date: 20211220
  Receipt Date: 20211220
  Transmission Date: 20220303
  Serious: Yes (Hospitalization, Other)
  Sender: FDA-Public Use
  Company Number: US-SA-2021SA419735

PATIENT
  Age: 62 Year
  Sex: Female

DRUGS (5)
  1. OXALIPLATIN [Suspect]
     Active Substance: OXALIPLATIN
     Indication: Pancreatic carcinoma
     Dosage: 153 MG
     Route: 042
     Dates: start: 20210616
  2. FLUOROURACIL [Suspect]
     Active Substance: FLUOROURACIL
     Indication: Pancreatic carcinoma
     Dosage: UNK 48 HOUR CONTINUOUS INFUSION STARTING ON DAYS 1 AND 15 OF EACH 28-DAY CYCLE (2400 MG/M2)
     Route: 042
     Dates: start: 20210616
  3. IRINOTECAN [Suspect]
     Active Substance: IRINOTECAN
     Indication: Pancreatic carcinoma
     Dosage: 270 UG, QOW
     Route: 042
     Dates: start: 20210616, end: 20210729
  4. BUDIGALIMAB [Suspect]
     Active Substance: BUDIGALIMAB
     Dosage: 500 MG, Q4W
     Route: 042
     Dates: start: 20210618, end: 20210618
  5. LEUCOVORIN CALCIUM [Suspect]
     Active Substance: LEUCOVORIN CALCIUM
     Indication: Pancreatic carcinoma
     Dosage: 725 MG, QOW
     Route: 042
     Dates: start: 20210616

REACTIONS (5)
  - Autoimmune hepatitis [Recovered/Resolved]
  - Hepatic enzyme increased [Recovered/Resolved]
  - Anaemia [Recovered/Resolved]
  - Dehydration [Recovered/Resolved]
  - Anaemia [Not Recovered/Not Resolved]

NARRATIVE: CASE EVENT DATE: 20210708
